FAERS Safety Report 12993708 (Version 2)
Quarter: 2017Q2

REPORT INFORMATION
  Report Type: Spontaneous
  Country: US (occurrence: US)
  Receive Date: 20161202
  Receipt Date: 20170414
  Transmission Date: 20170830
  Serious: No
  Sender: FDA-Public Use
  Company Number: US-JNJFOC-20161123193

PATIENT
  Sex: Male

DRUGS (2)
  1. RISPERDAL [Suspect]
     Active Substance: RISPERIDONE
     Indication: SCHIZOPHRENIA
     Dosage: 2-4 MG
     Route: 048
     Dates: start: 2009
  2. RISPERDAL [Suspect]
     Active Substance: RISPERIDONE
     Indication: SCHIZOPHRENIA
     Route: 048
     Dates: start: 2007

REACTIONS (1)
  - Gynaecomastia [Unknown]

NARRATIVE: CASE EVENT DATE: 2014
